FAERS Safety Report 15928272 (Version 1)
Quarter: 2019Q1

REPORT INFORMATION
  Report Type: Spontaneous
  Country: JP (occurrence: JP)
  Receive Date: 20190206
  Receipt Date: 20190206
  Transmission Date: 20190417
  Serious: Yes (Other)
  Sender: FDA-Public Use
  Company Number: JP-PFIZER INC-2019045006

PATIENT
  Age: 66 Year

DRUGS (10)
  1. CLINDAMYCIN. [Concomitant]
     Active Substance: CLINDAMYCIN
     Dosage: UNK
  2. FLOMOX [CEFCAPENE PIVOXIL HYDROCHLORIDE] [Suspect]
     Active Substance: CEFCAPENE PIVOXIL HYDROCHLORIDE
     Dosage: UNK UNK, SINGLE
  3. CALONAL [Concomitant]
     Active Substance: ACETAMINOPHEN
     Dosage: UNK
  4. CRAVIT [Concomitant]
     Active Substance: LEVOFLOXACIN
     Dosage: UNK
  5. ZYVOX [Suspect]
     Active Substance: LINEZOLID
     Dosage: UNK UNK, SINGLE
  6. OLMETEC [Concomitant]
     Active Substance: OLMESARTAN MEDOXOMIL
     Dosage: UNK
  7. AMLODIPINE [Concomitant]
     Active Substance: AMLODIPINE BESYLATE
     Dosage: UNK
  8. ROHYPNOL [Concomitant]
     Active Substance: FLUNITRAZEPAM
     Dosage: UNK
  9. RIFAMPICIN [Concomitant]
     Active Substance: RIFAMPIN
     Dosage: UNK
  10. MUCOSTA [Concomitant]
     Active Substance: REBAMIPIDE
     Dosage: UNK

REACTIONS (1)
  - Anaphylactic shock [Recovered/Resolved]
